FAERS Safety Report 7504671-2 (Version None)
Quarter: 2011Q2

REPORT INFORMATION
  Report Type: 
  Country: None (occurrence: None)
  Receive Date: 20110525
  Receipt Date: 20110513
  Transmission Date: 20111010
  Serious: Yes (Other)
  Sender: FDA-Public Use
  Company Number: US-AMGEN-QUU406078

PATIENT
  Age: 2 Year
  Sex: Male
  Weight: 7.2 kg

DRUGS (6)
  1. BACTRIM [Concomitant]
     Dosage: 2 ML, BID
     Route: 048
  2. IMMUNOGLOBULINS [Concomitant]
     Dosage: 10 G, QWK
     Route: 042
     Dates: start: 20091001
  3. PLATELETS [Concomitant]
     Dosage: UNK UNK, 3 TIMES/WK
     Route: 042
  4. FERROUS SULFATE TAB [Concomitant]
     Dosage: 1.2 ML, QD
     Route: 048
  5. LOVENOX [Concomitant]
     Dosage: 10 MG, BID
     Route: 058
  6. NPLATE [Suspect]
     Indication: PRODUCT USED FOR UNKNOWN INDICATION
     Dosage: 50 A?G, QWK
     Route: 058
     Dates: start: 20091012, end: 20091102

REACTIONS (1)
  - DRUG INEFFECTIVE [None]
